FAERS Safety Report 8162856-9 (Version None)
Quarter: 2012Q1

REPORT INFORMATION
  Report Type: 
  Country: None (occurrence: None)
  Receive Date: 20120224
  Receipt Date: 20120214
  Transmission Date: 20120608
  Serious: Yes (Hospitalization)
  Sender: FDA-Public Use
  Company Number: FR-JNJFOC-20120208404

PATIENT
  Age: 47 Year
  Sex: Male
  Weight: 88 kg

DRUGS (3)
  1. REMICADE [Suspect]
     Route: 042
     Dates: start: 20110831
  2. REMICADE [Suspect]
     Route: 042
     Dates: start: 20000101, end: 20110101
  3. REMICADE [Suspect]
     Indication: ANKYLOSING SPONDYLITIS
     Dosage: 50TH INFUSION
     Route: 042
     Dates: start: 20110708

REACTIONS (1)
  - MULTIPLE MYELOMA [None]
